FAERS Safety Report 9807156 (Version 6)
Quarter: 2015Q1

REPORT INFORMATION
  Report Type: Spontaneous
  Country: FR (occurrence: FR)
  Receive Date: 20140110
  Receipt Date: 20150220
  Transmission Date: 20150721
  Serious: Yes (Hospitalization, Disabling)
  Sender: FDA-Public Use
  Company Number: FR-BIOGENIDEC-2014BI001445

PATIENT
  Age: 47 Year
  Sex: Male

DRUGS (7)
  1. TYSABRI [Suspect]
     Active Substance: NATALIZUMAB
     Indication: MULTIPLE SCLEROSIS
     Route: 042
     Dates: start: 201001, end: 20131106
  2. TEGRETOL [Concomitant]
     Active Substance: CARBAMAZEPINE
  3. NORDAZ [Concomitant]
     Active Substance: NORDAZEPAM
  4. XATRAL [Concomitant]
     Active Substance: ALFUZOSIN
     Route: 048
  5. MYOLASTAN [Concomitant]
     Active Substance: TETRAZEPAM
  6. LYRICA [Concomitant]
     Active Substance: PREGABALIN
  7. LAROXYL [Concomitant]
     Active Substance: AMITRIPTYLINE

REACTIONS (2)
  - Immune reconstitution inflammatory syndrome [Recovered/Resolved]
  - Progressive multifocal leukoencephalopathy [Recovered/Resolved]

NARRATIVE: CASE EVENT DATE: 20131204
